FAERS Safety Report 7219148-1 (Version None)
Quarter: 2011Q1

REPORT INFORMATION
  Report Type: 
  Country: None (occurrence: None)
  Receive Date: 20110111
  Receipt Date: 20101231
  Transmission Date: 20110831
  Serious: Yes (Other)
  Sender: FDA-Public Use
  Company Number: US-ELI_LILLY_AND_COMPANY-US201005000302

PATIENT
  Sex: Female

DRUGS (2)
  1. FORTEO [Suspect]
     Dosage: 20 UG, DAILY (1/D)
  2. FORTEO [Suspect]
     Indication: OSTEOPOROSIS
     Dosage: 20 UG, DAILY (1/D)
     Dates: start: 20100120

REACTIONS (7)
  - OSTEOMYELITIS [None]
  - MALAISE [None]
  - ARTHRALGIA [None]
  - ASTHENIA [None]
  - SPINAL COLUMN INJURY [None]
  - SLEEP DISORDER DUE TO A GENERAL MEDICAL CONDITION [None]
  - PAIN [None]
